FAERS Safety Report 22329530 (Version 1)
Quarter: 2023Q2

REPORT INFORMATION
  Report Type: Report from Study
  Country: US (occurrence: None)
  Receive Date: 20230517
  Receipt Date: 20230517
  Transmission Date: 20230721
  Serious: Yes (Death, Life-Threatening)
  Sender: FDA-Public Use
  Company Number: US-ROCHE-3349166

PATIENT

DRUGS (8)
  1. RITUXIMAB [Suspect]
     Active Substance: RITUXIMAB
     Indication: Burkitt^s lymphoma
     Dosage: TOTAL DOSE 750 MG, LAST DOSE ON 10/SEP/2015
     Route: 042
     Dates: start: 20150910
  2. FILGRASTIM [Suspect]
     Active Substance: FILGRASTIM
     Indication: Burkitt^s lymphoma
     Dosage: LAST DOSE ON 30/SEP/2015, TOTAL DOSE 4800 MG
     Route: 065
     Dates: start: 20150915
  3. CYCLOPHOSPHAMIDE [Suspect]
     Active Substance: CYCLOPHOSPHAMIDE
     Indication: Burkitt^s lymphoma
     Dosage: LAST DOSE ADMINISTERED ON14/SEP/2015, TOTAL DOSE 1500 MG
     Route: 065
     Dates: start: 20150914
  4. DOXORUBICIN [Suspect]
     Active Substance: DOXORUBICIN
     Indication: Burkitt^s lymphoma
     Dosage: LAST DOSE ADMINISTERED ON 13/SEP/2015, TOTAL DOSE 60 MG
     Route: 065
     Dates: start: 20150911
  5. METHOTREXATE [Suspect]
     Active Substance: METHOTREXATE
     Indication: Burkitt^s lymphoma
     Dosage: SUBSEQUENT DOSE WAS ALSO ADMINISTERED ON 14/SEP/2015, 18/SEP/2025, 21/SEP/2025, TOTAL DOSE WAS 12 MG
     Route: 065
     Dates: start: 20150911
  6. VINCRISTINE [Suspect]
     Active Substance: VINCRISTINE
     Indication: Burkitt^s lymphoma
     Dosage: LAST DOSE ADMINISTERED ON 13/SEP/2015, TOTAL DOSE 2.4 MG
     Route: 065
     Dates: start: 20150911
  7. ETOPOSIDE [Suspect]
     Active Substance: ETOPOSIDE
     Indication: Burkitt^s lymphoma
     Dosage: LAST DOSE ADMINISTERED ON 13/SEP/2015, TOTAL DOSE 300 MG
     Route: 065
     Dates: start: 20150911
  8. PREDNISONE [Suspect]
     Active Substance: PREDNISONE
     Indication: Burkitt^s lymphoma
     Dosage: LAST DOSE ADMINISTERED ON 15/SEP/2015, TOTAL DOSE 1200 MG
     Route: 065
     Dates: start: 20150910

REACTIONS (2)
  - Multiple organ dysfunction syndrome [Fatal]
  - Febrile neutropenia [Unknown]

NARRATIVE: CASE EVENT DATE: 20150925
